FAERS Safety Report 7232505-2 (Version None)
Quarter: 2011Q1

REPORT INFORMATION
  Report Type: 
  Country: None (occurrence: None)
  Receive Date: 20110119
  Receipt Date: 20110110
  Transmission Date: 20110831
  Serious: Yes (Hospitalization, Other)
  Sender: FDA-Public Use
  Company Number: AU-US-EMD SERONO, INC.-7022403

PATIENT
  Sex: Female

DRUGS (1)
  1. REBIF [Suspect]
     Indication: PRODUCT USED FOR UNKNOWN INDICATION
     Route: 058
     Dates: start: 20080704, end: 20100101

REACTIONS (4)
  - PLEURAL EFFUSION [None]
  - SARCOIDOSIS [None]
  - CHEST PAIN [None]
  - LYMPH NODES SCAN ABNORMAL [None]
